FAERS Safety Report 13967074 (Version 3)
Quarter: 2018Q1

REPORT INFORMATION
  Report Type: Spontaneous
  Country: GB (occurrence: GB)
  Receive Date: 20170914
  Receipt Date: 20180102
  Transmission Date: 20180508
  Serious: Yes (Disabling, Other)
  Sender: FDA-Public Use
  Company Number: GB-JNJFOC-20170908457

PATIENT
  Age: 39 Year
  Sex: Female
  Weight: 105 kg

DRUGS (5)
  1. NAPROXEN. [Concomitant]
     Active Substance: NAPROXEN
     Indication: HEADACHE
     Dosage: 250 MG OR 500 MG
     Route: 048
     Dates: start: 20140920
  2. TRAMADOL. [Concomitant]
     Active Substance: TRAMADOL
     Indication: HEADACHE
     Dosage: DOSE 50 (UNIT UNSPECIFIED)
     Route: 048
     Dates: start: 201405, end: 201607
  3. AMITRIPTYLINE [Concomitant]
     Active Substance: AMITRIPTYLINE
     Indication: HEADACHE
     Dosage: DOSE 10 (UNIT UNSPECIFIED)
     Route: 048
     Dates: start: 20140920, end: 201608
  4. PARACETAMOL [Suspect]
     Active Substance: ACETAMINOPHEN
     Indication: HEADACHE
     Dosage: DOSE: 500 (UNIT UNSPECIFIED)
     Route: 048
     Dates: start: 20140920
  5. OMEPRAZOLE. [Concomitant]
     Active Substance: OMEPRAZOLE
     Indication: GASTROOESOPHAGEAL REFLUX DISEASE
     Dosage: DOSE 20 (UNIT UNSPECIFIED)
     Route: 048
     Dates: start: 20140905

REACTIONS (1)
  - Fatigue [Not Recovered/Not Resolved]

NARRATIVE: CASE EVENT DATE: 201409
